FAERS Safety Report 5610943-9 (Version None)
Quarter: 2008Q1

REPORT INFORMATION
  Report Type: 
  Country: None (occurrence: None)
  Receive Date: 20080128
  Receipt Date: 20080116
  Transmission Date: 20080703
  Serious: Yes (Hospitalization)
  Sender: FDA-Public Use
  Company Number: DSU-2007-00975

PATIENT
  Age: 73 Year
  Sex: Female
  Weight: 83.4619 kg

DRUGS (4)
  1. BENICAR [Suspect]
     Indication: HYPERTENSION
     Dosage: 40 MG (40 MG,QD), PER ORAL
     Route: 048
     Dates: start: 20061201
  2. CATAPRES [Concomitant]
  3. ASA (ACETYLSALICYLIC ACID) (TABLET) (ACETYLSALICYLIC ACID) [Concomitant]
  4. PRILOSEC (OMEPRAZOLE)(OMEPRAZOLE) [Concomitant]

REACTIONS (1)
  - CEREBROVASCULAR ACCIDENT [None]
